FAERS Safety Report 24780897 (Version 1)
Quarter: 2024Q4

REPORT INFORMATION
  Report Type: Other
  Country: FR (occurrence: FR)
  Receive Date: 20241227
  Receipt Date: 20241227
  Transmission Date: 20250114
  Serious: Yes (Hospitalization)
  Sender: ZYDUS PHARM
  Company Number: None

PATIENT

DRUGS (11)
  1. ATORVASTATIN [Suspect]
     Active Substance: ATORVASTATIN
     Indication: Dyslipidaemia
     Dosage: 1 DOSAGE FORM, QD
     Route: 048
     Dates: start: 20240308
  2. BISOPROLOL [Suspect]
     Active Substance: BISOPROLOL
     Indication: Hypertension
     Dosage: 1.25 MILLIGRAM, QD
     Route: 048
     Dates: start: 20240311, end: 20240319
  3. ALDACTONE [Suspect]
     Active Substance: SPIRONOLACTONE
     Indication: Hypertension
     Dosage: 1 DOSAGE FORM, QD
     Route: 048
     Dates: start: 20240310, end: 20240320
  4. DAPAGLIFLOZIN [Suspect]
     Active Substance: DAPAGLIFLOZIN
     Indication: Insulin-requiring type 2 diabetes mellitus
     Dosage: 1 DOSAGE FORM
     Route: 048
     Dates: start: 20240313, end: 20240313
  5. IOMERON [Suspect]
     Active Substance: IOMEPROL
     Indication: Angiocardiogram
     Dosage: 1 DOSAGE FORM
     Route: 042
     Dates: start: 20240309, end: 20240311
  6. LOVENOX [Suspect]
     Active Substance: ENOXAPARIN SODIUM
     Indication: Acute myocardial infarction
     Dosage: 1 DOSAGE FORM, QD
     Route: 058
     Dates: start: 20240308
  7. RACECADOTRIL [Suspect]
     Active Substance: RACECADOTRIL
     Indication: Diarrhoea
     Dosage: UNK
     Route: 048
     Dates: start: 20240313
  8. FUROSEMIDE [Suspect]
     Active Substance: FUROSEMIDE
     Indication: Acute myocardial infarction
     Dosage: 2 DOSAGE FORM, QD
     Route: 042
     Dates: start: 20240309, end: 20240320
  9. CORDARONE [Suspect]
     Active Substance: AMIODARONE HYDROCHLORIDE
     Indication: Cardiac ventricular disorder
     Dosage: UNK
     Route: 048
     Dates: start: 20240310, end: 20240310
  10. HYDROQUINIDINE HYDROCHLORIDE [Concomitant]
     Active Substance: HYDROQUINIDINE HYDROCHLORIDE
     Indication: Cardiac ventricular disorder
     Dosage: 2 DOSAGE FORM, QD
     Route: 048
     Dates: start: 20240310, end: 20240311
  11. COLCHICINE [Concomitant]
     Active Substance: COLCHICINE
     Indication: Gout
     Dosage: UNK
     Route: 048
     Dates: start: 20240309, end: 20240313

REACTIONS (1)
  - Drug reaction with eosinophilia and systemic symptoms [Recovering/Resolving]

NARRATIVE: CASE EVENT DATE: 20240317
